FAERS Safety Report 7328883-6 (Version None)
Quarter: 2011Q1

REPORT INFORMATION
  Report Type: 
  Country: None (occurrence: None)
  Receive Date: 20110303
  Receipt Date: 20110228
  Transmission Date: 20110831
  Serious: Yes (Death, Other)
  Sender: FDA-Public Use
  Company Number: CN-ROCHE-762472

PATIENT
  Age: 40 Year

DRUGS (6)
  1. TARCEVA [Suspect]
     Indication: HEPATIC CANCER METASTATIC
     Route: 048
  2. RAPAMUNE [Concomitant]
     Indication: LIVER TRANSPLANT
     Route: 048
  3. PROGRAF [Concomitant]
     Indication: LIVER TRANSPLANT
     Route: 048
  4. UNSPECIFIED DRUG [Concomitant]
     Dosage: REPORTED AS CHINESE HERBAL MEDICINE.
     Route: 048
  5. CELLCEPT [Suspect]
     Indication: LIVER TRANSPLANT
     Route: 048
  6. NEXAVAR [Concomitant]
     Route: 048

REACTIONS (3)
  - PYREXIA [None]
  - HEPATIC NEOPLASM MALIGNANT RECURRENT [None]
  - HEPATIC CANCER METASTATIC [None]
